FAERS Safety Report 21247208 (Version 1)
Quarter: 2022Q3

REPORT INFORMATION
  Report Type: Spontaneous
  Country: US (occurrence: US)
  Receive Date: 20220824
  Receipt Date: 20220824
  Transmission Date: 20221027
  Serious: Yes (Death, Other)
  Sender: FDA-Public Use
  Company Number: US-BRISTOL-MYERS SQUIBB COMPANY-2022-094320

PATIENT
  Age: 70 Year
  Sex: Male

DRUGS (13)
  1. OPDIVO [Suspect]
     Active Substance: NIVOLUMAB
     Indication: Oesophageal carcinoma
     Dosage: DOSE : 480MG;     FREQ : EVERY 4 WEEKS?STRENGTH AND PRESENTATION OF THE AE : 2 240MG VIALS
     Route: 042
     Dates: start: 20220427
  2. DECADRON [Concomitant]
     Active Substance: DEXAMETHASONE
  3. THEOPHYLLINE [Concomitant]
     Active Substance: THEOPHYLLINE
  4. ERGOCALCIFEROL [Concomitant]
     Active Substance: ERGOCALCIFEROL
  5. AMIODARONE [Concomitant]
     Active Substance: AMIODARONE
  6. ZOCOR [Concomitant]
     Active Substance: SIMVASTATIN
  7. TOPROL XL [Concomitant]
     Active Substance: METOPROLOL SUCCINATE
  8. K TAB [Concomitant]
  9. MOBIC [Concomitant]
     Active Substance: MELOXICAM
  10. FLOMAX [Concomitant]
     Active Substance: TAMSULOSIN HYDROCHLORIDE
  11. PROSCAR [Concomitant]
     Active Substance: FINASTERIDE
  12. TIOTROPIUM [Concomitant]
     Active Substance: TIOTROPIUM
  13. SYMBICORT [Concomitant]
     Active Substance: BUDESONIDE\FORMOTEROL FUMARATE DIHYDRATE

REACTIONS (1)
  - Death [Fatal]
